FAERS Safety Report 4941441-3 (Version None)
Quarter: 2006Q1

REPORT INFORMATION
  Report Type: 
  Country: None (occurrence: None)
  Receive Date: 20060313
  Receipt Date: 20051212
  Transmission Date: 20060701
  Serious: Yes (Hospitalization, Disabling, Other)
  Sender: FDA-Public Use
  Company Number: US-MERCK-0512USA01957

PATIENT
  Age: 43 Year
  Sex: Male
  Weight: 105 kg

DRUGS (10)
  1. VIOXX [Suspect]
     Indication: BACK PAIN
     Route: 048
     Dates: start: 20030901, end: 20040901
  2. VIOXX [Suspect]
     Route: 048
     Dates: start: 20030901, end: 20040901
  3. XENICAL [Concomitant]
     Route: 065
  4. TIZANIDINE HYDROCHLORIDE [Concomitant]
     Route: 065
  5. NEURONTIN [Concomitant]
     Indication: PAIN
     Route: 065
  6. PAROXETINE HYDROCHLORIDE [Concomitant]
     Route: 065
  7. WELLBUTRIN SR [Concomitant]
     Route: 065
  8. NAPROXEN [Concomitant]
     Indication: PAIN
     Route: 065
  9. TRAMADOL HYDROCHLORIDE [Concomitant]
     Route: 065
  10. BUPROPION HYDROCHLORIDE [Concomitant]
     Route: 065

REACTIONS (10)
  - ADVERSE EVENT [None]
  - ANXIETY [None]
  - BACK INJURY [None]
  - CHEST PAIN [None]
  - DEPRESSION [None]
  - DYSPEPSIA [None]
  - HEART RATE IRREGULAR [None]
  - HYPERTENSION [None]
  - MYOCARDIAL INFARCTION [None]
  - PRESCRIBED OVERDOSE [None]
